FAERS Safety Report 12276387 (Version 2)
Quarter: 2016Q2

REPORT INFORMATION
  Report Type: Spontaneous
  Country: ES (occurrence: ES)
  Receive Date: 20160418
  Receipt Date: 20160525
  Transmission Date: 20160815
  Serious: Yes (Other)
  Sender: FDA-Public Use
  Company Number: ES-ABBVIE-16K-144-1603865-00

PATIENT
  Age: 52 Year
  Sex: Male

DRUGS (5)
  1. TOCILIZUMAB [Concomitant]
     Active Substance: TOCILIZUMAB
     Indication: PRODUCT USED FOR UNKNOWN INDICATION
     Route: 042
  2. SIMPONI [Suspect]
     Active Substance: GOLIMUMAB
     Indication: RHEUMATOID ARTHRITIS
     Route: 065
     Dates: start: 201211
  3. ARAVA [Suspect]
     Active Substance: LEFLUNOMIDE
     Indication: RHEUMATOID ARTHRITIS
     Route: 065
     Dates: start: 2010, end: 201108
  4. TOCILIZUMAB [Concomitant]
     Active Substance: TOCILIZUMAB
     Route: 058
  5. HUMIRA [Suspect]
     Active Substance: ADALIMUMAB
     Indication: RHEUMATOID ARTHRITIS
     Route: 058
     Dates: start: 201104, end: 201210

REACTIONS (10)
  - Proteinuria [Recovered/Resolved]
  - Hypersensitivity vasculitis [Recovering/Resolving]
  - Skin lesion [Recovered/Resolved]
  - Transaminases increased [Unknown]
  - Antineutrophil cytoplasmic antibody positive [Recovering/Resolving]
  - Fatigue [Recovering/Resolving]
  - Hyperuricaemia [Unknown]
  - Weight decreased [Unknown]
  - Drug effect decreased [Unknown]
  - Skin discolouration [Unknown]

NARRATIVE: CASE EVENT DATE: 201108
